FAERS Safety Report 6324430-6 (Version None)
Quarter: 2009Q3

REPORT INFORMATION
  Report Type: 
  Country: None (occurrence: None)
  Receive Date: 20090824
  Receipt Date: 20090429
  Transmission Date: 20100115
  Serious: No
  Sender: FDA-Public Use
  Company Number: US-ABBOTT-09P-163-0570625-00

PATIENT
  Sex: Female
  Weight: 59.474 kg

DRUGS (2)
  1. NIASPAN [Suspect]
     Indication: BLOOD CHOLESTEROL INCREASED
     Route: 048
     Dates: start: 20090422
  2. DIOVAN [Concomitant]
     Indication: HYPERTENSION

REACTIONS (4)
  - DYSPEPSIA [None]
  - HOT FLUSH [None]
  - NAUSEA [None]
  - PRURITUS [None]
